FAERS Safety Report 4915326-2 (Version None)
Quarter: 2006Q1

REPORT INFORMATION
  Report Type: 
  Country: None (occurrence: None)
  Receive Date: 20060217
  Receipt Date: 20060213
  Transmission Date: 20060701
  Serious: Yes (Hospitalization)
  Sender: FDA-Public Use
  Company Number: J200600389

PATIENT
  Age: 50 Year
  Sex: Male

DRUGS (3)
  1. SAWACILLIN [Suspect]
     Dosage: 1500MG PER DAY
     Route: 048
  2. PROTON PUMP INHIBITOR [Concomitant]
     Route: 065
  3. CLARITHROMYCIN [Concomitant]
     Route: 065

REACTIONS (2)
  - ASTHENIA [None]
  - HEPATIC FUNCTION ABNORMAL [None]
